FAERS Safety Report 9162870 (Version 1)
Quarter: 2013Q1

REPORT INFORMATION
  Report Type: Spontaneous
  Country: CN (occurrence: CN)
  Receive Date: 20130314
  Receipt Date: 20130314
  Transmission Date: 20140127
  Serious: Yes (Hospitalization)
  Sender: FDA-Public Use
  Company Number: CN-GE HEALTHCARE MEDICAL DIAGNOSTICS-OMPQ-NO-1303S-0286

PATIENT
  Age: 43 Year
  Sex: Female

DRUGS (4)
  1. OMNIPAQUE [Suspect]
     Indication: CHEST PAIN
     Route: 042
     Dates: start: 20130225, end: 20130225
  2. OMNIPAQUE [Suspect]
     Indication: PAIN IN EXTREMITY
  3. OMNIPAQUE [Suspect]
     Indication: DIAGNOSTIC PROCEDURE
  4. PANAX NOTOGINSENG SAPONINS [Concomitant]

REACTIONS (2)
  - Rash maculo-papular [Recovering/Resolving]
  - Erythema [Recovering/Resolving]
